FAERS Safety Report 8907233 (Version 1)
Quarter: 2012Q4

REPORT INFORMATION
  Report Type: 
  Country: US (occurrence: US)
  Receive Date: 20121113
  Receipt Date: 20121113
  Transmission Date: 20130627
  Serious: No
  Sender: FDA-Public Use
  Company Number: US-AMGEN-USASP2012010554

PATIENT
  Age: 54 Year
  Sex: Female
  Weight: 75.74 kg

DRUGS (10)
  1. ENBREL [Suspect]
     Indication: PRODUCT USED FOR UNKNOWN INDICATION
     Dosage: 25 mg, 2 times/wk
  2. ZOCOR [Concomitant]
     Dosage: 10 mg, UNK
  3. SYNTHROID [Concomitant]
     Dosage: UNK
  4. HYDROCHLOROTHIAZIDE [Concomitant]
     Dosage: 25 mg, UNK
  5. TOPROL [Concomitant]
     Dosage: 200 mg, UNK
  6. SULINDAC [Concomitant]
     Dosage: 150 mg, UNK
  7. MULTIVITAMIN AND MINERAL [Concomitant]
     Dosage: UNK
  8. VITAMIN C                          /00008001/ [Concomitant]
     Dosage: 500 mg, UNK
  9. BENICAR [Concomitant]
     Dosage: 40 mg, UNK
  10. TYLENOL /00020001/ [Concomitant]
     Dosage: 325 mg, UNK

REACTIONS (1)
  - Sinusitis [Unknown]
